FAERS Safety Report 10029764 (Version 1)
Quarter: 2014Q1

REPORT INFORMATION
  Report Type: Spontaneous
  Country: US (occurrence: None)
  Receive Date: 20140321
  Receipt Date: 20140321
  Transmission Date: 20141002
  Serious: Yes (Hospitalization)
  Sender: FDA-Public Use
  Company Number: None

PATIENT
  Sex: Female

DRUGS (5)
  1. AFINITOR [Suspect]
     Route: 048
     Dates: start: 20130325
  2. URISODIOL [Concomitant]
  3. CREON [Concomitant]
  4. ALBUTEROL [Concomitant]
  5. INSULIN [Concomitant]

REACTIONS (2)
  - Deafness [None]
  - Bile duct stone [None]
